FAERS Safety Report 10200305 (Version 2)
Quarter: 2014Q2

REPORT INFORMATION
  Report Type: Spontaneous
  Country: JP (occurrence: JP)
  Receive Date: 20140527
  Receipt Date: 20140527
  Transmission Date: 20141212
  Serious: Yes (Hospitalization)
  Sender: FDA-Public Use
  Company Number: PHJP2014JP000672

PATIENT
  Age: 72 Year
  Sex: Male
  Weight: 73 kg

DRUGS (4)
  1. TEGRETOL TAB 200MG [Suspect]
     Indication: TRIGEMINAL NEURALGIA
     Dosage: 100 MG, QD
     Route: 048
     Dates: start: 20131210, end: 20140219
  2. NU-LOTAN [Concomitant]
     Dosage: UNK UKN, UNK
     Route: 048
     Dates: end: 20131228
  3. LIPIDIL [Concomitant]
     Dosage: UNK UKN, UNK
     Route: 048
     Dates: end: 20131228
  4. GAMOFA [Concomitant]
     Dosage: UNK UKN, UNK
     Route: 048
     Dates: end: 20131228

REACTIONS (1)
  - Interstitial lung disease [Recovering/Resolving]
